FAERS Safety Report 7402399-0 (Version None)
Quarter: 2011Q1

REPORT INFORMATION
  Report Type: 
  Country: None (occurrence: None)
  Receive Date: 20110331
  Receipt Date: 20110321
  Transmission Date: 20110831
  Serious: Yes (Other)
  Sender: FDA-Public Use
  Company Number: 2011GR_BP0333

PATIENT
  Age: 79 Year
  Sex: Male

DRUGS (5)
  1. MISOPROSTOL [Concomitant]
  2. FINASTERIDE [Suspect]
     Indication: BENIGN NEOPLASM OF PROSTATE
     Dosage: NR
     Dates: start: 20101201
  3. CODEINE [Concomitant]
  4. PHOSPHATE (PARACETAMOL) (CODEINE PHOSPHATE, PARACETAMOL) [Concomitant]
  5. LACTULOSE [Concomitant]

REACTIONS (3)
  - BLOOD ALKALINE PHOSPHATASE INCREASED [None]
  - LIVER FUNCTION TEST ABNORMAL [None]
  - ALANINE AMINOTRANSFERASE INCREASED [None]
